FAERS Safety Report 8430728-8 (Version None)
Quarter: 2012Q2

REPORT INFORMATION
  Report Type: 
  Country: None (occurrence: None)
  Receive Date: 20120612
  Receipt Date: 20120604
  Transmission Date: 20120825
  Serious: No
  Sender: FDA-Public Use
  Company Number: US-B.I. PHARMACEUTICALS,INC./RIDGEFIELD-2012-BP-12987BP

PATIENT
  Sex: Female

DRUGS (2)
  1. PRADAXA [Suspect]
     Indication: ATRIAL FIBRILLATION
     Dosage: 300 MG
     Route: 048
     Dates: start: 20110703, end: 20110708
  2. ATENOLOL [Concomitant]
     Dosage: 50 MG
     Route: 048

REACTIONS (2)
  - PAIN [None]
  - MUSCULOSKELETAL CHEST PAIN [None]
